FAERS Safety Report 4395465-8 (Version None)
Quarter: 2004Q3

REPORT INFORMATION
  Report Type: 
  Country: None (occurrence: None)
  Receive Date: 20040709
  Receipt Date: 20040623
  Transmission Date: 20050211
  Serious: Yes (Other)
  Sender: FDA-Public Use
  Company Number: 200413146BCC

PATIENT
  Age: 43 Year
  Sex: Female
  Weight: 86.1834 kg

DRUGS (3)
  1. NEO-SYNEPHRINE  SPRAY(PHENYLEPHRINE HYDROCHLORIDE) [Suspect]
     Indication: SINUS CONGESTION
     Dosage: NASAL
     Dates: start: 19670601
  2. NEO-SYNEPHRINE  12-HR EXTRA MOISTURIZING SPRAY(OXYMETAZOLINE HYDROCHLO [Suspect]
     Indication: SINUS CONGESTION
  3. XANAX [Concomitant]

REACTIONS (3)
  - DRUG DEPENDENCE [None]
  - DYSPNOEA [None]
  - SINUS DISORDER [None]
